FAERS Safety Report 16279101 (Version 1)
Quarter: 2019Q2

REPORT INFORMATION
  Report Type: Spontaneous
  Country: CN (occurrence: CN)
  Receive Date: 20190506
  Receipt Date: 20190506
  Transmission Date: 20190711
  Serious: Yes (Hospitalization, Other)
  Sender: FDA-Public Use
  Company Number: CN-SA-2019SA122908

PATIENT
  Age: 53 Year
  Sex: Female

DRUGS (2)
  1. OXALIPLATIN. [Suspect]
     Active Substance: OXALIPLATIN
     Indication: COLON CANCER STAGE II
     Dosage: 130 MG/M2
  2. CAPECITABINE. [Concomitant]
     Active Substance: CAPECITABINE
     Indication: COLON CANCER STAGE II
     Dosage: 1000 MG/M2
     Route: 040

REACTIONS (15)
  - Hyperpyrexia [Recovering/Resolving]
  - Haemolytic anaemia [Recovering/Resolving]
  - Nausea [Recovering/Resolving]
  - Antithrombin III decreased [Recovering/Resolving]
  - Hypersensitivity [Recovering/Resolving]
  - Oliguria [Recovering/Resolving]
  - Acute kidney injury [Recovering/Resolving]
  - Pyrexia [Recovered/Resolved]
  - Vomiting [Recovering/Resolving]
  - Thrombocytopenia [Recovering/Resolving]
  - Hypotension [Recovering/Resolving]
  - Back pain [Recovering/Resolving]
  - Chromaturia [Recovering/Resolving]
  - Blood urea increased [Recovered/Resolved]
  - Platelet count decreased [Recovering/Resolving]
